FAERS Safety Report 7410237-5 (Version None)
Quarter: 2011Q2

REPORT INFORMATION
  Report Type: 
  Country: None (occurrence: None)
  Receive Date: 20110412
  Receipt Date: 20110401
  Transmission Date: 20111010
  Serious: Yes (Other)
  Sender: FDA-Public Use
  Company Number: US-BAYER-2011-029534

PATIENT
  Sex: Male
  Weight: 73 kg

DRUGS (1)
  1. ONE-A-DAY MEN'S 50 + ADVANTAGE [Suspect]
     Dosage: 1 DF, QD, BOTTLE COUNT 50S
     Route: 048
     Dates: start: 20110301

REACTIONS (4)
  - HAEMATEMESIS [None]
  - VOMITING [None]
  - EATING DISORDER [None]
  - MALAISE [None]
